FAERS Safety Report 16912979 (Version 1)
Quarter: 2019Q4

REPORT INFORMATION
  Report Type: Spontaneous
  Country: CA (occurrence: CA)
  Receive Date: 20191014
  Receipt Date: 20191014
  Transmission Date: 20200122
  Serious: Yes (Disabling)
  Sender: FDA-Public Use
  Company Number: CA-TEVA-2019-CA-1119790

PATIENT
  Age: 59 Year
  Sex: Female
  Weight: 69.46 kg

DRUGS (1)
  1. TEVA-ROSUVASTATIN [Suspect]
     Active Substance: ROSUVASTATIN
     Indication: DYSLIPIDAEMIA
     Dosage: 5 MILLIGRAM DAILY;
     Route: 048

REACTIONS (3)
  - Mobility decreased [Recovered/Resolved]
  - Joint effusion [Recovered/Resolved]
  - Synovial cyst [Recovered/Resolved]
